FAERS Safety Report 7965803-5 (Version None)
Quarter: 2011Q4

REPORT INFORMATION
  Report Type: 
  Country: None (occurrence: None)
  Receive Date: 20111208
  Receipt Date: 20111130
  Transmission Date: 20120403
  Serious: Yes (Disabling)
  Sender: FDA-Public Use
  Company Number: US-ABBOTT-11P-163-0879689-00

PATIENT
  Sex: Female
  Weight: 80.812 kg

DRUGS (9)
  1. GABAPENTIN [Concomitant]
     Indication: DIABETIC NEUROPATHY
  2. OXAPROZIN [Concomitant]
     Indication: INFLAMMATION
  3. PRILOSEC [Concomitant]
     Indication: GASTROOESOPHAGEAL REFLUX DISEASE
  4. CLONIDINE [Concomitant]
     Indication: HYPERTENSION
  5. METOPROLOL TARTRATE [Concomitant]
     Indication: HYPERTENSION
  6. SULFASALAZINE [Concomitant]
     Indication: INFLAMMATION
  7. METFORMIN HCL [Concomitant]
     Indication: DIABETES MELLITUS
  8. HUMIRA [Suspect]
     Indication: RHEUMATOID ARTHRITIS
  9. LISINOPRIL [Concomitant]
     Indication: HYPERTENSION

REACTIONS (8)
  - BLOOD GLUCOSE INCREASED [None]
  - FOREIGN BODY SENSATION IN EYES [None]
  - EYE HAEMORRHAGE [None]
  - VISUAL ACUITY REDUCED [None]
  - VISION BLURRED [None]
  - HEADACHE [None]
  - OPTIC ISCHAEMIC NEUROPATHY [None]
  - THROMBOSIS [None]
